FAERS Safety Report 10667072 (Version 2)
Quarter: 2014Q4

REPORT INFORMATION
  Report Type: Report from Study
  Country: US (occurrence: US)
  Receive Date: 20141222
  Receipt Date: 20141222
  Transmission Date: 20150529
  Serious: Yes (Other)
  Sender: FDA-Public Use
  Company Number: US-ROCHE-1495298

PATIENT
  Age: 63 Year
  Sex: Male
  Weight: 90.8 kg

DRUGS (2)
  1. LUCENTIS [Suspect]
     Active Substance: RANIBIZUMAB
     Indication: AGE-RELATED MACULAR DEGENERATION
     Dosage: HAS ONLY HAD ONE INJECTION
     Route: 050
     Dates: start: 20140925
  2. SUBOXONE [Concomitant]
     Active Substance: BUPRENORPHINE HYDROCHLORIDE\NALOXONE HYDROCHLORIDE
     Route: 060

REACTIONS (16)
  - Drug dose omission [Unknown]
  - Eye pain [Unknown]
  - Ocular hyperaemia [Recovered/Resolved with Sequelae]
  - Chest discomfort [Not Recovered/Not Resolved]
  - Speech disorder [Unknown]
  - Intraocular pressure increased [Recovered/Resolved with Sequelae]
  - Oropharyngeal pain [Recovered/Resolved with Sequelae]
  - Foreign body sensation in eyes [Recovered/Resolved with Sequelae]
  - Blister [Recovered/Resolved with Sequelae]
  - Lacrimation increased [Recovered/Resolved with Sequelae]
  - Abnormal sensation in eye [Recovered/Resolved with Sequelae]
  - Eye discharge [Recovered/Resolved with Sequelae]
  - Pneumonia [Not Recovered/Not Resolved]
  - Visual impairment [Recovered/Resolved]
  - Photophobia [Not Recovered/Not Resolved]
  - Ocular discomfort [Unknown]

NARRATIVE: CASE EVENT DATE: 20140925
